FAERS Safety Report 11157712 (Version 3)
Quarter: 2015Q3

REPORT INFORMATION
  Report Type: Spontaneous
  Country: US (occurrence: None)
  Receive Date: 20150601
  Receipt Date: 20150707
  Transmission Date: 20151125
  Serious: Yes (Hospitalization, Other)
  Sender: FDA-Public Use
  Company Number: 2015TASUS000767

PATIENT
  Age: 64 Year
  Sex: Female

DRUGS (13)
  1. ARTIFICIAL TEARS (HYPROMELLOSE) [Concomitant]
  2. CALCIUM (CALCIUM CARBONATE) [Concomitant]
  3. IRON W/ VITAMIN C (IRON W/VITAMIN C) [Concomitant]
  4. NYSTATIN (NYSTATIN) [Concomitant]
     Active Substance: NYSTATIN
  5. MIRAPEX [Concomitant]
     Active Substance: PRAMIPEXOLE DIHYDROCHLORIDE
  6. MAGNESIUM (MAGNESIUM) [Concomitant]
     Active Substance: MAGNESIUM
  7. LEXAPRO [Concomitant]
     Active Substance: ESCITALOPRAM OXALATE
  8. HETLIOZ [Suspect]
     Active Substance: TASIMELTEON
     Indication: CIRCADIAN RHYTHM SLEEP DISORDER
     Route: 048
     Dates: start: 20150417, end: 20150505
  9. COUGH SYRUP (ANTIMONY POTASSIUM TARTRATE, PAPAVER SOMNIFERUM TINCTURE, TERPIN HYDRATE) [Concomitant]
  10. MULTIVITAMIN (VITAMINS NOS) [Concomitant]
     Active Substance: VITAMINS
  11. IMODIUM A-D (LOPERAMIDE HYDROCHLORIDE) [Concomitant]
  12. BENADRYL [Concomitant]
     Active Substance: DIPHENHYDRAMINE HYDROCHLORIDE
  13. FISH OIL (FISH OIL) [Concomitant]
     Active Substance: FISH OIL

REACTIONS (4)
  - Middle insomnia [None]
  - Headache [None]
  - Colon cancer [None]
  - Pain in extremity [None]

NARRATIVE: CASE EVENT DATE: 20150420
